FAERS Safety Report 7789601-0 (Version None)
Quarter: 2011Q3

REPORT INFORMATION
  Report Type: 
  Country: None (occurrence: None)
  Receive Date: 20110930
  Receipt Date: 20110927
  Transmission Date: 20111222
  Serious: Yes (Other)
  Sender: FDA-Public Use
  Company Number: US-PFIZER INC-2011144104

PATIENT
  Sex: Female
  Weight: 65.8 kg

DRUGS (5)
  1. DEPO-PROVERA [Suspect]
     Dosage: UNK
     Dates: start: 20090808
  2. DEPO-PROVERA [Suspect]
     Indication: CONTRACEPTION
     Dosage: UNK
     Dates: start: 20030401
  3. DEPO-PROVERA [Suspect]
     Dosage: UNK
  4. DEPO-PROVERA [Suspect]
     Dosage: UNK
  5. DEPO-PROVERA [Suspect]
     Dosage: UNK
     Dates: end: 20070101

REACTIONS (11)
  - SPINAL COLUMN INJURY [None]
  - SPINAL OSTEOARTHRITIS [None]
  - SPINAL DEFORMITY [None]
  - MUSCLE CONTRACTURE [None]
  - OSTEOSCLEROSIS [None]
  - CARDIAC DISORDER [None]
  - BONE DENSITY DECREASED [None]
  - WEIGHT INCREASED [None]
  - PAIN [None]
  - OSTEOPOROSIS [None]
  - HEART RATE INCREASED [None]
